FAERS Safety Report 9933605 (Version 2)
Quarter: 2014Q1

REPORT INFORMATION
  Report Type: Report from Study
  Country: US (occurrence: US)
  Receive Date: 20140228
  Receipt Date: 20140228
  Transmission Date: 20141002
  Serious: No
  Sender: FDA-Public Use
  Company Number: US-MYLANLABS-2013S1026300

PATIENT
  Age: 7 Decade
  Sex: Female

DRUGS (2)
  1. AMNESTEEM CAPSULES [Suspect]
     Indication: ACNE
     Route: 048
     Dates: start: 20131107
  2. ABSORICA [Suspect]
     Indication: ACNE
     Route: 048
     Dates: start: 20130910, end: 20131106

REACTIONS (1)
  - Pruritus [Recovering/Resolving]
